FAERS Safety Report 24852079 (Version 1)
Quarter: 2025Q1

REPORT INFORMATION
  Report Type: Spontaneous
  Country: US (occurrence: US)
  Receive Date: 20250116
  Receipt Date: 20250116
  Transmission Date: 20250408
  Serious: No
  Sender: SK LIFE SCIENCE
  Company Number: US-SK LIFE SCIENCE, INC-SKPVG-2024-002164

PATIENT

DRUGS (2)
  1. XCOPRI [Suspect]
     Active Substance: CENOBAMATE
     Indication: Temporal lobe epilepsy
     Route: 048
  2. XCOPRI [Suspect]
     Active Substance: CENOBAMATE
     Dosage: 400 MG (TWO 200 MG TABLETS) ONCE DAILY AT NIGHT
     Route: 048

REACTIONS (5)
  - Seizure [Recovered/Resolved]
  - Dizziness postural [Unknown]
  - Memory impairment [Unknown]
  - Balance disorder [Unknown]
  - Coordination abnormal [Unknown]
